FAERS Safety Report 5392924-6 (Version None)
Quarter: 2007Q3

REPORT INFORMATION
  Report Type: 
  Country: None (occurrence: None)
  Receive Date: 20070718
  Receipt Date: 20070702
  Transmission Date: 20080115
  Serious: Yes (Life-Threatening)
  Sender: FDA-Public Use
  Company Number: GXKR2007DE05730

PATIENT
  Age: 56 Year
  Sex: Female
  Weight: 53 kg

DRUGS (3)
  1. RAMIPRIL+HYDROCHLOROTHIAZIDE SANDOZ (NGX) (HYDROCHLOROTHIAZIDE, RAMIPR [Suspect]
     Indication: HYPERTENSION
     Dosage: 5 MG/25MG DAILY, ORAL
     Route: 048
     Dates: start: 20050301, end: 20060608
  2. CITALON (NGX) (CITALOPRAM) FILM-COATED TABLET, 20MG [Suspect]
     Indication: INSOMNIA
     Dosage: 20 MG, ORAL
     Route: 048
     Dates: start: 20060101, end: 20060608
  3. L-THYROXINE (LEVOTHYROXINE) TABLET [Concomitant]

REACTIONS (1)
  - HEPATITIS ACUTE [None]
